FAERS Safety Report 5104623-6 (Version None)
Quarter: 2006Q3

REPORT INFORMATION
  Report Type: 
  Country: None (occurrence: None)
  Receive Date: 20060914
  Receipt Date: 20060727
  Transmission Date: 20061208
  Serious: Yes (Disabling)
  Sender: FDA-Public Use
  Company Number: PHFR2006GB02370

PATIENT
  Age: 83 Year
  Sex: Female

DRUGS (6)
  1. FEMARA [Suspect]
     Indication: BREAST CANCER RECURRENT
     Dosage: 2.5MG/DAY
     Route: 048
     Dates: start: 20060501
  2. RAMIPRIL [Concomitant]
     Indication: CARDIOVASCULAR DISORDER
     Dosage: 10MG/DAY
     Route: 048
  3. ATENOLOL [Concomitant]
     Indication: CARDIOVASCULAR DISORDER
     Dosage: 25MG/DAY
     Route: 048
  4. ASPIRIN [Concomitant]
     Indication: CARDIOVASCULAR DISORDER
     Dosage: 75MG/DAY
     Route: 048
  5. SIMVASTATIN [Concomitant]
     Indication: THROMBOSIS PROPHYLAXIS
     Dosage: 40MG/DAY
     Route: 048
  6. DALTEPARIN SODIUM [Concomitant]
     Indication: THROMBOSIS PROPHYLAXIS
     Route: 058

REACTIONS (1)
  - DIPLOPIA [None]
